FAERS Safety Report 4493732-0 (Version None)
Quarter: 2004Q4

REPORT INFORMATION
  Report Type: 
  Country: None (occurrence: None)
  Receive Date: 20041105
  Receipt Date: 20030328
  Transmission Date: 20050328
  Serious: Yes (Hospitalization, Disabling)
  Sender: FDA-Public Use
  Company Number: FR-ABBOTT-03P-056-0214825-00

PATIENT
  Age: 56 Year
  Sex: Female

DRUGS (6)
  1. FENOFIBRATE [Suspect]
     Indication: HYPERCHOLESTEROLAEMIA
     Route: 048
     Dates: end: 20020715
  2. FENOFIBRATE [Suspect]
     Route: 048
     Dates: start: 20020801
  3. LIPANTHYL MICRONISE [Suspect]
     Indication: HYPERCHOLESTEROLAEMIA
     Route: 048
     Dates: start: 20020801
  4. MENINGOCOCCAL POLYSACCHARIDE [Concomitant]
     Indication: DRUG USE FOR UNKNOWN INDICATION
     Dates: start: 20010929
  5. DIPHTHERIA AND TETANUS TOXOIDS AND PERTUSSIS [Concomitant]
     Indication: DRUG USE FOR UNKNOWN INDICATION
     Dates: start: 20010929
  6. YELLOW FEVER VACCINE [Concomitant]
     Indication: DRUG USE FOR UNKNOWN INDICATION
     Dates: start: 20010929

REACTIONS (3)
  - MOBILITY DECREASED [None]
  - MYALGIA [None]
  - PERIARTHRITIS [None]
